FAERS Safety Report 6785759-0 (Version None)
Quarter: 2010Q2

REPORT INFORMATION
  Report Type: 
  Country: None (occurrence: None)
  Receive Date: 20100623
  Receipt Date: 20100616
  Transmission Date: 20101027
  Serious: Yes (Death)
  Sender: FDA-Public Use
  Company Number: FR-GENZYME-FABR-1001390

PATIENT
  Sex: Male
  Weight: 42 kg

DRUGS (8)
  1. FABRAZYME [Suspect]
     Indication: FABRY'S DISEASE
     Dosage: 35 MG, Q2W
     Route: 042
     Dates: start: 20091010
  2. FABRAZYME [Suspect]
     Dosage: 70 MG, Q2W
     Route: 042
     Dates: start: 20071010
  3. CARDENSIEL [Concomitant]
     Indication: CARDIAC FAILURE
     Dosage: UNK
     Dates: start: 20090601, end: 20100514
  4. TRIATEC [Concomitant]
     Indication: HYPERTENSION
     Dosage: UNK
     Dates: start: 20020101, end: 20100514
  5. PLAVIX [Concomitant]
     Indication: THROMBOSIS PROPHYLAXIS
     Dosage: UNK
     Dates: start: 20090601, end: 20100514
  6. TAHOR [Concomitant]
     Indication: HYPERLIPIDAEMIA
     Dosage: UNK
     Dates: start: 20050101, end: 20100514
  7. DIHYDANTOIN [Concomitant]
     Indication: EPILEPSY
     Dosage: UNK
     Dates: start: 19920201, end: 20100514
  8. TEGRETOL [Concomitant]
     Indication: EPILEPSY
     Dosage: UNK
     Dates: start: 19920201, end: 20100514

REACTIONS (2)
  - MYOCARDIAL INFARCTION [None]
  - RENAL IMPAIRMENT [None]
